FAERS Safety Report 4607028-7 (Version None)
Quarter: 2005Q1

REPORT INFORMATION
  Report Type: 
  Country: None (occurrence: None)
  Receive Date: 20050309
  Receipt Date: 20050225
  Transmission Date: 20050727
  Serious: Yes (Hospitalization)
  Sender: FDA-Public Use
  Company Number: USA-2005-0018858

PATIENT
  Age: 75 Year
  Sex: Female

DRUGS (1)
  1. PERI-COLACE [Suspect]
     Dosage: 5, DAILY
     Dates: start: 20050211

REACTIONS (7)
  - ASTHENIA [None]
  - CHILLS [None]
  - DRUG INEFFECTIVE [None]
  - FULL BLOOD COUNT ABNORMAL [None]
  - HAEMATOCHEZIA [None]
  - MALAISE [None]
  - OVERDOSE [None]
